FAERS Safety Report 4395848-6 (Version None)
Quarter: 2004Q3

REPORT INFORMATION
  Report Type: 
  Country: None (occurrence: None)
  Receive Date: 20040709
  Receipt Date: 20040625
  Transmission Date: 20050211
  Serious: Yes (Other)
  Sender: FDA-Public Use
  Company Number: US-JNJFOC-20040607905

PATIENT
  Age: 65 Year
  Sex: Male

DRUGS (6)
  1. INFLIXIMAB     (INFLIXIMAB, RECOMBINANT) [Suspect]
     Indication: RHEUMATOID ARTHRITIS
     Dosage: , 1 IN 8 WEEK, INTRAVENOUS
     Route: 042
     Dates: start: 20010201
  2. METHOTREXATE [Concomitant]
  3. PREDNISONE TAB [Concomitant]
  4. CELEBREX [Concomitant]
  5. PAIN PILLS (ANALGESICS) [Concomitant]
  6. PROSTATE MEDICATION (PROSTATE GLAND EXTRACT) [Concomitant]

REACTIONS (1)
  - PROSTATE CANCER [None]
